FAERS Safety Report 5112949-5 (Version None)
Quarter: 2006Q3

REPORT INFORMATION
  Report Type: 
  Country: None (occurrence: None)
  Receive Date: 20060731
  Receipt Date: 20060504
  Transmission Date: 20061208
  Serious: No
  Sender: FDA-Public Use
  Company Number: 2006PV013303

PATIENT
  Age: 63 Year
  Sex: Female
  Weight: 78.0187 kg

DRUGS (6)
  1. BYETTA [Suspect]
     Indication: DIABETES MELLITUS NON-INSULIN-DEPENDENT
     Dosage: SEE IMAGE
     Route: 058
     Dates: start: 20060101, end: 20060201
  2. BYETTA [Suspect]
     Indication: DIABETES MELLITUS NON-INSULIN-DEPENDENT
     Dosage: SEE IMAGE
     Route: 058
     Dates: start: 20060201
  3. FORTAMET [Concomitant]
  4. LEVOTHYROXINE SODIUM [Concomitant]
  5. ANTIBIOTIC [Concomitant]
  6. ANTIHISTAMINES [Concomitant]

REACTIONS (5)
  - BLOOD GLUCOSE INCREASED [None]
  - DRUG INEFFECTIVE FOR UNAPPROVED INDICATION [None]
  - INFLUENZA [None]
  - PYREXIA [None]
  - RESPIRATORY TRACT CONGESTION [None]
